FAERS Safety Report 7889785-X (Version None)
Quarter: 2011Q4

REPORT INFORMATION
  Report Type: 
  Country: None (occurrence: None)
  Receive Date: 20111103
  Receipt Date: 20111024
  Transmission Date: 20120403
  Serious: Yes (Hospitalization)
  Sender: FDA-Public Use
  Company Number: US-GLAXOSMITHKLINE-A0835776A

PATIENT
  Age: 54 Year
  Sex: Male

DRUGS (1)
  1. AVANDIA [Suspect]
     Indication: TYPE 2 DIABETES MELLITUS
     Dosage: 2MG PER DAY
     Route: 048
     Dates: start: 20060505, end: 20090301

REACTIONS (5)
  - RENAL INJURY [None]
  - PALPITATIONS [None]
  - CARDIAC DISORDER [None]
  - OEDEMA [None]
  - RENAL FAILURE ACUTE [None]
